FAERS Safety Report 4555072-0 (Version None)
Quarter: 2004Q4

REPORT INFORMATION
  Report Type: 
  Country: None (occurrence: None)
  Receive Date: 20041217
  Receipt Date: 20040803
  Transmission Date: 20050328
  Serious: No
  Sender: FDA-Public Use
  Company Number: 2004-BP-05367BP

PATIENT
  Age: 80 Year
  Sex: Male

DRUGS (2)
  1. SPIRIVA HANDIHANDLER (TIOTROPIUM BROMIDE) [Suspect]
     Indication: ASTHMA
     Dosage: 18 MCG (18 MCG, 1 INH OD), IH
     Route: 055
     Dates: start: 20040622
  2. FORADIL (FORMOTEROL NR FUMARATE) [Concomitant]

REACTIONS (1)
  - DRUG INEFFECTIVE [None]
